FAERS Safety Report 7987021-7 (Version None)
Quarter: 2011Q4

REPORT INFORMATION
  Report Type: 
  Country: None (occurrence: None)
  Receive Date: 20111216
  Receipt Date: 20110310
  Transmission Date: 20120403
  Serious: No
  Sender: FDA-Public Use
  Company Number: US-BRISTOL-MYERS SQUIBB COMPANY-15603087

PATIENT
  Age: 40 Year
  Sex: Male

DRUGS (2)
  1. LEXAPRO [Suspect]
  2. ABILIFY [Suspect]

REACTIONS (1)
  - RESTLESS LEGS SYNDROME [None]
